FAERS Safety Report 20124150 (Version 1)
Quarter: 2021Q4

REPORT INFORMATION
  Report Type: Spontaneous
  Country: US (occurrence: US)
  Receive Date: 20211129
  Receipt Date: 20211129
  Transmission Date: 20220303
  Serious: Yes (Hospitalization, Other)
  Sender: FDA-Public Use
  Company Number: US-LUPIN PHARMACEUTICALS INC.-2021-23156

PATIENT
  Age: 69 Year
  Sex: Male

DRUGS (2)
  1. LINEZOLID [Suspect]
     Active Substance: LINEZOLID
     Indication: Osteomyelitis
     Dosage: UNK INITIALLY, GIVEN FOR 6 WEEKS
     Route: 048
     Dates: start: 201907, end: 2020
  2. LINEZOLID [Suspect]
     Active Substance: LINEZOLID
     Indication: Staphylococcal bacteraemia

REACTIONS (16)
  - Pleural effusion [Recovered/Resolved]
  - Colitis [Recovered/Resolved]
  - Asthenia [Recovered/Resolved]
  - Weight decreased [Recovered/Resolved]
  - Decreased appetite [Recovered/Resolved]
  - Diarrhoea [Recovered/Resolved]
  - Bicytopenia [Recovered/Resolved]
  - Hypogammaglobulinaemia [Recovered/Resolved]
  - Hypolipidaemia [Recovered/Resolved]
  - Alopecia [Recovered/Resolved]
  - Anaemia [Recovered/Resolved]
  - Toxicity to various agents [Unknown]
  - Hypolipidaemia [Recovered/Resolved]
  - Fall [Recovered/Resolved]
  - Incorrect product administration duration [Unknown]
  - Product prescribing error [Unknown]

NARRATIVE: CASE EVENT DATE: 20191201
